FAERS Safety Report 11942204 (Version 1)
Quarter: 2016Q1

REPORT INFORMATION
  Report Type: Spontaneous
  Country: US (occurrence: US)
  Receive Date: 20160125
  Receipt Date: 20160125
  Transmission Date: 20160526
  Serious: No
  Sender: FDA-Public Use
  Company Number: US-NOVEN PHARMACEUTICALS, INC.-US2015000932

PATIENT
  Sex: Female

DRUGS (1)
  1. BRISDELLE [Suspect]
     Active Substance: PAROXETINE MESYLATE
     Indication: PRODUCT USED FOR UNKNOWN INDICATION
     Dosage: 7.5 MG, UNK
     Route: 048

REACTIONS (1)
  - Feeling abnormal [Unknown]
